FAERS Safety Report 8142290-8 (Version None)
Quarter: 2012Q1

REPORT INFORMATION
  Report Type: 
  Country: None (occurrence: None)
  Receive Date: 20120216
  Receipt Date: 20120210
  Transmission Date: 20120608
  Serious: Yes (Hospitalization, Other)
  Sender: FDA-Public Use
  Company Number: BR-ABBOTT-12P-020-0900833-00

PATIENT
  Sex: Male

DRUGS (2)
  1. NITRAZEPAM [Suspect]
     Indication: SLEEP DISORDER THERAPY
     Dates: start: 19940101, end: 19940101
  2. DEPAKENE [Suspect]
     Indication: INFANTILE SPASMS
     Route: 048
     Dates: start: 19930101

REACTIONS (4)
  - HYPERSENSITIVITY [None]
  - ARRHYTHMIA [None]
  - BRONCHITIS [None]
  - PNEUMONIA [None]
